FAERS Safety Report 4990127-8 (Version None)
Quarter: 2006Q2

REPORT INFORMATION
  Report Type: 
  Country: None (occurrence: None)
  Receive Date: 20060501
  Receipt Date: 20060501
  Transmission Date: 20061013
  Serious: Yes (Other)
  Sender: FDA-Public Use
  Company Number: None

PATIENT
  Age: 41 Year
  Sex: Female

DRUGS (6)
  1. QUETIAPINE FUMARATE [Suspect]
     Indication: SCHIZOPHRENIA
     Dosage: 100 MG HS PO
     Route: 048
  2. KALETRA [Suspect]
     Indication: HIV INFECTION
     Dosage: 200/50 BID PO
     Route: 048
  3. TRUVADA [Concomitant]
  4. METFORMIN [Concomitant]
  5. INSULIN [Concomitant]
  6. FAMOTIDINE [Concomitant]

REACTIONS (4)
  - DIZZINESS [None]
  - DRUG DOSE OMISSION [None]
  - DRUG RESISTANCE [None]
  - SOMNOLENCE [None]
